FAERS Safety Report 9565422 (Version 3)
Quarter: 2013Q4

REPORT INFORMATION
  Report Type: Spontaneous
  Country: IE (occurrence: IE)
  Receive Date: 20130930
  Receipt Date: 20131114
  Transmission Date: 20140711
  Serious: Yes (Death, Life-Threatening)
  Sender: FDA-Public Use
  Company Number: IE-ASTRAZENECA-2013SE72211

PATIENT
  Age: 93 Year
  Sex: Female

DRUGS (11)
  1. SEROQUEL IR [Suspect]
     Indication: DELUSION
     Route: 048
  2. SEROQUEL IR [Suspect]
     Indication: HALLUCINATION, VISUAL
     Route: 048
  3. SEROQUEL IR [Suspect]
     Indication: DELUSION
     Route: 048
     Dates: start: 20130827
  4. SEROQUEL IR [Suspect]
     Indication: HALLUCINATION, VISUAL
     Route: 048
     Dates: start: 20130827
  5. SEROQUEL IR [Suspect]
     Indication: DELUSION
     Dosage: 25-50 MG
     Route: 048
     Dates: start: 20130827
  6. SEROQUEL IR [Suspect]
     Indication: HALLUCINATION, VISUAL
     Dosage: 25-50 MG
     Route: 048
     Dates: start: 20130827
  7. ANTIBIOTIC [Concomitant]
  8. MEMANTINE [Concomitant]
  9. VESITIRIM [Concomitant]
  10. NUSEALS ASPIRIN [Concomitant]
  11. IDEOS [Concomitant]

REACTIONS (3)
  - Cardiac output decreased [Fatal]
  - Hypotension [Fatal]
  - Off label use [Unknown]
